FAERS Safety Report 4651702-3 (Version None)
Quarter: 2005Q2

REPORT INFORMATION
  Report Type: 
  Country: None (occurrence: None)
  Receive Date: 20050404
  Receipt Date: 20041214
  Transmission Date: 20051028
  Serious: No
  Sender: FDA-Public Use
  Company Number: USA041184707

PATIENT
  Age: 71 Year
  Sex: Female
  Weight: 82 kg

DRUGS (3)
  1. CYMBALTA [Suspect]
     Dosage: 60 MG
     Dates: start: 20041001, end: 20041212
  2. GLUCOPHAGE [Concomitant]
  3. NEURONTIN [Concomitant]

REACTIONS (2)
  - NAUSEA [None]
  - TINNITUS [None]
